FAERS Safety Report 6458437-5 (Version None)
Quarter: 2009Q4

REPORT INFORMATION
  Report Type: 
  Country: None (occurrence: None)
  Receive Date: 20091126
  Receipt Date: 20091120
  Transmission Date: 20100525
  Serious: Yes (Other)
  Sender: FDA-Public Use
  Company Number: US-ASTRAZENECA-2007UW14911

PATIENT
  Age: 56 Year
  Sex: Female
  Weight: 110.7 kg

DRUGS (17)
  1. SEROQUEL [Suspect]
     Indication: SLEEP DISORDER
     Dosage: 50-100 MG
     Route: 048
     Dates: start: 20020301, end: 20060602
  2. SEROQUEL [Suspect]
     Indication: ANXIETY
     Dosage: 50-100 MG
     Route: 048
     Dates: start: 20020301, end: 20060602
  3. SEROQUEL [Suspect]
     Indication: DEPRESSION
     Dosage: 50-100 MG
     Route: 048
     Dates: start: 20020301, end: 20060602
  4. SEROQUEL [Suspect]
     Indication: BIPOLAR DISORDER
     Dosage: 50-100 MG
     Route: 048
     Dates: start: 20020301, end: 20060602
  5. SEROQUEL [Suspect]
     Dosage: 25 MG - 75 MG
     Route: 048
     Dates: start: 20030202
  6. SEROQUEL [Suspect]
     Dosage: 25 MG - 75 MG
     Route: 048
     Dates: start: 20030202
  7. SEROQUEL [Suspect]
     Dosage: 25 MG - 75 MG
     Route: 048
     Dates: start: 20030202
  8. SEROQUEL [Suspect]
     Dosage: 25 MG - 75 MG
     Route: 048
     Dates: start: 20030202
  9. SEROQUEL [Suspect]
     Route: 048
     Dates: start: 20030101
  10. SEROQUEL [Suspect]
     Route: 048
     Dates: start: 20030101
  11. SEROQUEL [Suspect]
     Route: 048
     Dates: start: 20030101
  12. SEROQUEL [Suspect]
     Route: 048
     Dates: start: 20030101
  13. ZOLOFT [Concomitant]
     Dates: start: 19960401
  14. ZOLOFT [Concomitant]
     Dates: start: 19960101
  15. ALPRAZOLAM [Concomitant]
     Dates: start: 19960101
  16. ALPRAZOLAM [Concomitant]
     Dates: start: 19950101, end: 20000101
  17. DEPAKOTE [Concomitant]
     Dates: start: 19960101, end: 20020101

REACTIONS (6)
  - BLOOD DISORDER [None]
  - CELLULITIS [None]
  - DIABETIC GASTROPARESIS [None]
  - HYPERGLYCAEMIA [None]
  - NON-HODGKIN'S LYMPHOMA [None]
  - TYPE 2 DIABETES MELLITUS [None]
